FAERS Safety Report 19757618 (Version 6)
Quarter: 2022Q1

REPORT INFORMATION
  Report Type: Report from Study
  Country: US (occurrence: US)
  Receive Date: 20210828
  Receipt Date: 20220225
  Transmission Date: 20220424
  Serious: No
  Sender: FDA-Public Use
  Company Number: US-NOVARTISTESTPH-NVSC2021US189774

PATIENT
  Sex: Female

DRUGS (1)
  1. MAYZENT [Suspect]
     Active Substance: SIPONIMOD
     Indication: Multiple sclerosis
     Dosage: 2 MG, QD
     Route: 048

REACTIONS (8)
  - Malaise [Recovered/Resolved]
  - Eye disorder [Recovered/Resolved]
  - Visual impairment [Recovered/Resolved]
  - Dry eye [Recovered/Resolved]
  - Laziness [Unknown]
  - Hangover [Unknown]
  - Hot flush [Unknown]
  - Fatigue [Unknown]
